FAERS Safety Report 18746776 (Version 1)
Quarter: 2021Q1

REPORT INFORMATION
  Report Type: Spontaneous
  Country: DK (occurrence: DK)
  Receive Date: 20210115
  Receipt Date: 20210115
  Transmission Date: 20210419
  Serious: Yes (Hospitalization)
  Sender: FDA-Public Use
  Company Number: NVSC2021DK005550

PATIENT
  Age: 49 Year
  Sex: Female

DRUGS (1)
  1. PANCILLIN [Suspect]
     Active Substance: PENICILLIN V
     Indication: PNEUMONIA
     Dosage: 1980 MG, QD (STRENGTH: I MILL. IU (660 MG))
     Route: 048
     Dates: start: 20201012, end: 20201012

REACTIONS (7)
  - Dyspnoea [Recovered/Resolved]
  - Paraesthesia [Recovered/Resolved]
  - Rash [Recovered/Resolved]
  - Hypoaesthesia oral [Recovered/Resolved]
  - Palpitations [Recovered/Resolved]
  - Headache [Recovered/Resolved]
  - Dizziness [Recovered/Resolved]

NARRATIVE: CASE EVENT DATE: 20201012
